FAERS Safety Report 7043353-0 (Version None)
Quarter: 2010Q3

REPORT INFORMATION
  Report Type: 
  Country: None (occurrence: None)
  Receive Date: 20100929
  Receipt Date: 20100726
  Transmission Date: 20110219
  Serious: Yes (Other)
  Sender: FDA-Public Use
  Company Number: US-WYE-H16683310

PATIENT
  Age: 74 Year
  Sex: Female
  Weight: 59.93 kg

DRUGS (2)
  1. PRISTIQ [Suspect]
     Indication: DEPRESSION
     Dosage: 50 MG, 1X PER 1 DAY, ORAL
     Route: 048
     Dates: start: 20090301, end: 20100601
  2. MULTI-VITAMINS [Concomitant]

REACTIONS (1)
  - VAGINAL ODOUR [None]
